FAERS Safety Report 4367129-8 (Version None)
Quarter: 2004Q2

REPORT INFORMATION
  Report Type: 
  Country: None (occurrence: None)
  Receive Date: 20040528
  Receipt Date: 20040329
  Transmission Date: 20050107
  Serious: Yes (Hospitalization)
  Sender: FDA-Public Use
  Company Number: JP-GLAXOSMITHKLINE-B0328644A

PATIENT
  Age: 62 Year
  Sex: Female
  Weight: 43 kg

DRUGS (9)
  1. VALTREX [Suspect]
     Indication: HERPES ZOSTER
     Dosage: 1000MG TWICE PER DAY
     Route: 048
     Dates: start: 20040315, end: 20040318
  2. ARASENA-A [Concomitant]
     Indication: HERPES ZOSTER
     Route: 061
     Dates: start: 20040313, end: 20040322
  3. KALIMATE [Concomitant]
     Dosage: 5.4G PER DAY
     Route: 048
  4. DIGITOXIN TAB [Concomitant]
     Indication: ATRIAL FIBRILLATION
     Dosage: .05MG PER DAY
     Route: 048
  5. ZADITEN [Concomitant]
     Dosage: 1MG TWICE PER DAY
     Route: 048
  6. PANALDINE [Concomitant]
     Indication: ATHEROSCLEROSIS OBLITERANS
     Dosage: 100MG TWO TIMES PER WEEK
     Route: 048
  7. CALTAN [Concomitant]
     Dosage: 500MG TWICE PER DAY
     Route: 048
  8. ACINON [Concomitant]
     Indication: GASTRITIS EROSIVE
     Dosage: 150MG TWICE PER DAY
     Route: 048
  9. HAEMODIALYSIS [Concomitant]
     Dates: start: 19970201

REACTIONS (10)
  - ANOREXIA [None]
  - ASTHENIA [None]
  - DEPRESSED LEVEL OF CONSCIOUSNESS [None]
  - DISORIENTATION [None]
  - MALAISE [None]
  - NERVOUS SYSTEM DISORDER [None]
  - PRESCRIBED OVERDOSE [None]
  - SOMNOLENCE [None]
  - SPEECH DISORDER [None]
  - STUPOR [None]
